FAERS Safety Report 21873874 (Version 1)
Quarter: 2023Q1

REPORT INFORMATION
  Report Type: Other
  Country: None (occurrence: IN)
  Receive Date: 20230117
  Receipt Date: 20230117
  Transmission Date: 20230417
  Serious: Yes (Life-Threatening, Other)
  Sender: FDA-Public Use
  Company Number: IN-Breckenridge Pharmaceutical, Inc.-2136792

PATIENT
  Age: 49 Year

DRUGS (1)
  1. IMATINIB [Suspect]
     Active Substance: IMATINIB
     Indication: Chronic myeloid leukaemia
     Route: 048
     Dates: start: 2014, end: 2020

REACTIONS (1)
  - Follicular lymphoma stage III [Recovering/Resolving]
